FAERS Safety Report 24062277 (Version 1)
Quarter: 2024Q3

REPORT INFORMATION
  Report Type: Spontaneous
  Country: US (occurrence: None)
  Receive Date: 20240708
  Receipt Date: 20240708
  Transmission Date: 20241017
  Serious: No
  Sender: Public
  Company Number: None

PATIENT
  Age: 83 Year
  Sex: Female

DRUGS (1)
  1. RYTARY [Suspect]
     Active Substance: CARBIDOPA\LEVODOPA
     Dosage: OTHER QUANTITY : 3;?FREQUENCY : 3 TIMES A DAY;?
     Route: 048

REACTIONS (3)
  - Dyskinesia [None]
  - Eye movement disorder [None]
  - Product physical issue [None]
